FAERS Safety Report 14646343 (Version 1)
Quarter: 2018Q1

REPORT INFORMATION
  Report Type: Report from Study
  Country: None (occurrence: US)
  Receive Date: 20180316
  Receipt Date: 20180316
  Transmission Date: 20180509
  Serious: Yes (Other)
  Sender: FDA-Public Use
  Company Number: US-ABBVIE-18K-163-2286950-00

PATIENT
  Age: 64 Year
  Sex: Female

DRUGS (3)
  1. HUMIRA [Suspect]
     Active Substance: ADALIMUMAB
     Indication: RHEUMATOID ARTHRITIS
     Route: 058
  2. HUMIRA [Suspect]
     Active Substance: ADALIMUMAB
     Route: 058
     Dates: start: 201711
  3. SIMPONI [Suspect]
     Active Substance: GOLIMUMAB
     Indication: RHEUMATOID ARTHRITIS
     Route: 065

REACTIONS (4)
  - Osteoarthritis [Recovering/Resolving]
  - Drug ineffective [Unknown]
  - Rheumatoid arthritis [Unknown]
  - Procedural pain [Recovering/Resolving]

NARRATIVE: CASE EVENT DATE: 201803
